FAERS Safety Report 15857277 (Version 1)
Quarter: 2018Q4

REPORT INFORMATION
  Report Type: Spontaneous
  Country: US (occurrence: US)
  Receive Date: 20181228
  Receipt Date: 20181228
  Transmission Date: 20190205
  Serious: Yes (Disabling)
  Sender: FDA-Public Use
  Company Number: None

PATIENT
  Sex: Female
  Weight: 66.22 kg

DRUGS (16)
  1. CALCIUM [Concomitant]
     Active Substance: CALCIUM
  2. BACKOFLEX [Concomitant]
  3. DIAZAPAM [Concomitant]
     Active Substance: DIAZEPAM
  4. BILBERRY [Concomitant]
     Active Substance: BILBERRY
  5. CQ 10 [Concomitant]
  6. BACOFEN [Concomitant]
     Active Substance: BACLOFEN
  7. MAZ [Concomitant]
  8. LOPRESSOR [Concomitant]
     Active Substance: METOPROLOL TARTRATE
  9. VALIUM [Concomitant]
     Active Substance: DIAZEPAM
  10. OMEGA3 [Concomitant]
  11. PROLIA [Suspect]
     Active Substance: DENOSUMAB
     Indication: OSTEOPOROSIS
     Dosage: ?          QUANTITY:1 DF DOSAGE FORM;?
     Dates: start: 201711, end: 201711
  12. MULTI [Concomitant]
  13. HYZRODONE [Concomitant]
  14. BONE MEND [Concomitant]
  15. VIT D 5 [Concomitant]
  16. LUTEIN [Concomitant]
     Active Substance: LUTEIN

REACTIONS (14)
  - Pain in jaw [None]
  - Muscular weakness [None]
  - Rash [None]
  - Dyspnoea [None]
  - Ear pain [None]
  - Groin pain [None]
  - Trismus [None]
  - Eating disorder [None]
  - Neck pain [None]
  - Musculoskeletal pain [None]
  - Muscle disorder [None]
  - Jaw disorder [None]
  - Cardiac valve disease [None]
  - Asthenia [None]
